FAERS Safety Report 20726963 (Version 2)
Quarter: 2022Q2

REPORT INFORMATION
  Report Type: Spontaneous
  Country: US (occurrence: US)
  Receive Date: 20220419
  Receipt Date: 20220507
  Transmission Date: 20220720
  Serious: No
  Sender: FDA-Public Use
  Company Number: US-SA-SAC20220414001226

PATIENT
  Age: 42 Year
  Sex: Female

DRUGS (13)
  1. DUPIXENT [Suspect]
     Active Substance: DUPILUMAB
     Indication: Asthma
     Dosage: 300 MG, QOW
     Route: 058
     Dates: start: 20220329
  2. NYSTATIN AND TRIAMCINOLONE [Concomitant]
     Active Substance: NYSTATIN\TRIAMCINOLONE ACETONIDE
  3. CLOTRIMAZOLE [Concomitant]
     Active Substance: CLOTRIMAZOLE
  4. BUMETANIDE [Concomitant]
     Active Substance: BUMETANIDE
     Dosage: VIAL
  5. EPINEPHRINE [Concomitant]
     Active Substance: EPINEPHRINE
  6. FLECAINIDE ACETATE [Concomitant]
     Active Substance: FLECAINIDE ACETATE
  7. OMEPRAZOLE [Concomitant]
     Active Substance: OMEPRAZOLE
     Dosage: POWDER
  8. SINGULAIR [Concomitant]
     Active Substance: MONTELUKAST SODIUM
  9. PREDNISONE [Concomitant]
     Active Substance: PREDNISONE
  10. BUDESONIDE\FORMOTEROL\GLYCOPYRRONIUM [Concomitant]
     Active Substance: BUDESONIDE\FORMOTEROL\GLYCOPYRRONIUM
  11. ALBUTEROL SULFATE\IPRATROPIUM BROMIDE [Concomitant]
     Active Substance: ALBUTEROL SULFATE\IPRATROPIUM BROMIDE
  12. ALBUTEROL SULFATE [Concomitant]
     Active Substance: ALBUTEROL SULFATE
  13. OXYGEN [Concomitant]
     Active Substance: OXYGEN

REACTIONS (8)
  - Eye discharge [Unknown]
  - Candida infection [Unknown]
  - Speech disorder [Unknown]
  - Sleep disorder [Unknown]
  - Decreased activity [Unknown]
  - Wheezing [Unknown]
  - Cough [Unknown]
  - Sleep disorder [Unknown]
